FAERS Safety Report 10182420 (Version 1)
Quarter: 2014Q2

REPORT INFORMATION
  Report Type: Spontaneous
  Country: US (occurrence: None)
  Receive Date: 20140516
  Receipt Date: 20140516
  Transmission Date: 20141212
  Serious: Yes (Other)
  Sender: FDA-Public Use
  Company Number: SYM-2014-20700

PATIENT
  Age: 41 Year
  Sex: Female

DRUGS (2)
  1. XENAZINE (TETRABENAZINE) (6.25 MILLIGRAM, TABLET) (TETRABENAZINE) [Suspect]
     Indication: HUNTINGTON^S DISEASE
     Dosage: 6.25 MG IN THE MORNING, ORAL
     Route: 048
  2. FLUOXETINE HYDROCHLORIDE [Concomitant]

REACTIONS (2)
  - Confusional state [None]
  - Depression [None]
